FAERS Safety Report 25076284 (Version 2)
Quarter: 2025Q1

REPORT INFORMATION
  Report Type: Spontaneous
  Country: BE (occurrence: BE)
  Receive Date: 20250313
  Receipt Date: 20250324
  Transmission Date: 20250409
  Serious: Yes (Other)
  Sender: ALEXION PHARMACEUTICALS
  Company Number: BE-AstraZeneca-CH-00824630A

PATIENT
  Age: 54 Year

DRUGS (2)
  1. TAGRISSO [Suspect]
     Active Substance: OSIMERTINIB
     Indication: Non-small cell lung cancer stage IV
     Route: 065
  2. TAFINLAR [Concomitant]
     Active Substance: DABRAFENIB MESYLATE
     Route: 065

REACTIONS (3)
  - Metastases to lymph nodes [Unknown]
  - Metastases to kidney [Unknown]
  - Acquired gene mutation [Unknown]
